FAERS Safety Report 5349846-6 (Version None)
Quarter: 2007Q2

REPORT INFORMATION
  Report Type: 
  Country: None (occurrence: None)
  Receive Date: 20070607
  Receipt Date: 20070531
  Transmission Date: 20071010
  Serious: Yes (Other)
  Sender: FDA-Public Use
  Company Number: KP-ROXANE LABORATORIES, INC-2007-BP-07402RO

PATIENT
  Age: 49 Year
  Sex: Female

DRUGS (3)
  1. LIDOCAINE [Suspect]
     Indication: NERVE BLOCK
     Dosage: 400 MG X 1
  2. MEPIVACAINE HCL [Suspect]
     Indication: NERVE BLOCK
     Dosage: 400 MG X 1
  3. DORMICUM [Suspect]
     Indication: SEDATION
     Dosage: 2.5 MG X 1

REACTIONS (2)
  - MOTOR DYSFUNCTION [None]
  - SENSORY LOSS [None]
